FAERS Safety Report 5281987-4 (Version None)
Quarter: 2007Q1

REPORT INFORMATION
  Report Type: 
  Country: None (occurrence: None)
  Receive Date: 20070330
  Receipt Date: 20070322
  Transmission Date: 20070707
  Serious: Yes (Death)
  Sender: FDA-Public Use
  Company Number: CA-BOEHRINGER INGELHEIM GMBH, GERMANY-2005-CN-00952CN

PATIENT
  Sex: Female
  Weight: 83 kg

DRUGS (7)
  1. TIPRANAVIR + RITONAVIR CO-ADMIN [Suspect]
     Indication: HIV INFECTION
     Dosage: 1000MG TPV / 400MG RTV
     Route: 048
     Dates: start: 20050607, end: 20050930
  2. TENOFOVIR DISOPROXIL FUMARATE [Suspect]
     Indication: HIV INFECTION
     Route: 048
     Dates: start: 20050607, end: 20050930
  3. T-20 [Suspect]
     Indication: HIV INFECTION
     Route: 058
     Dates: start: 20050607, end: 20050930
  4. LAMIVUDINE [Concomitant]
     Indication: HIV INFECTION
     Route: 048
     Dates: start: 20050607, end: 20050930
  5. ATARAX [Concomitant]
     Dates: start: 20050530, end: 20050930
  6. ATOVAQUONE [Concomitant]
     Dates: start: 20050530, end: 20050930
  7. STEMETIL MD [Concomitant]
     Dates: start: 20050721, end: 20050930

REACTIONS (2)
  - HAEMOLYTIC URAEMIC SYNDROME [None]
  - THROMBOTIC THROMBOCYTOPENIC PURPURA [None]
